FAERS Safety Report 20947702 (Version 1)
Quarter: 2022Q2

REPORT INFORMATION
  Report Type: Spontaneous
  Country: NL (occurrence: NL)
  Receive Date: 20220611
  Receipt Date: 20220611
  Transmission Date: 20220721
  Serious: Yes (Hospitalization)
  Sender: FDA-Public Use
  Company Number: None

PATIENT
  Age: 76 Year
  Sex: Male
  Weight: 72.2 kg

DRUGS (13)
  1. PANTOPRAZOLE [Suspect]
     Active Substance: PANTOPRAZOLE
     Indication: Product used for unknown indication
     Dosage: 1DD1, MSR/ BRAND NAME NOT SPECIFIED, UNIT DOSE AND UNIT STRENGTH : 20 MG, FREQUENCY TIME : 1 DAYS, T
     Route: 065
     Dates: start: 2019, end: 20220517
  2. SACUBITRIL\VALSARTAN [Concomitant]
     Active Substance: SACUBITRIL\VALSARTAN
     Dosage: 2DD1,97/103MG / BRAND NAME NOT SPECIFIED, THERAPY START DATE  AND  THERAPY END DATE : ASKU, UNIT DOS
  3. CLOPIDOGREL [Concomitant]
     Active Substance: CLOPIDOGREL BISULFATE
     Dosage: 1DD1, BRAND NAME NOT SPECIFIED, UNIT STRENGTH: 75 MG, UNIT DOSE : 75 MICROGRAM, THERAPY START DATE
  4. ASCORBIC ACID [Concomitant]
     Active Substance: ASCORBIC ACID
     Dosage: BRAND NAME NOT SPECIFIED, THERAPY START DATE  AND  THERAPY END DATE :ASKU
  5. ATORVASTATIN [Concomitant]
     Active Substance: ATORVASTATIN
     Dosage: 1DD1, BRAND NAME NOT SPECIFIED, UNIT DOSE AND UNIT STRENGTH :40 MG, THERAPY START DATE  AND  THERAPY
  6. TRESIBA [Concomitant]
     Active Substance: INSULIN DEGLUDEC
     Dosage: INSULIN DEGLUDEC 200E/ML INJVLST / INJVLST 200E/ML PEN 3ML, THERAPY START DATE  AND  THERAPY END DA
  7. BISOPROLOL [Concomitant]
     Active Substance: BISOPROLOL
     Dosage: 1DD1, BRAND NAME NOT SPECIFIED, THERAPY START DATE  AND  THERAPY END DATE : ASKU,UNIT DOSE AND UNIT
  8. MIRTAZAPINE [Concomitant]
     Active Substance: MIRTAZAPINE
     Dosage: 1DD1,  BRAND NAME NOT SPECIFIED, UNIT DOSE AND UNIT STRENGTH : 30 MG, THERAPY START DATE  AND  THERA
  9. OXAZEPAM [Concomitant]
     Active Substance: OXAZEPAM
     Dosage: BRAND NAME NOT SPECIFIED, STRENGTH : 10 MG, THERAPY START DATE  AND  THERAPY END DATE : ASKU, UNIT D
  10. FUROSEMIDE [Concomitant]
     Active Substance: FUROSEMIDE
     Dosage: 1DD1,BRAND NAME NOT SPECIFIED, UNIT DOSE AND UNIT STRENGTH : 40 MG, THERAPY START DATE  AND  THERAPY
  11. CELLCEPT [Concomitant]
     Active Substance: MYCOPHENOLATE MOFETIL
     Dosage: 2DD1, MYCOPHENOLATE MOFETIL TABLET 500MG, THERAPY START DATE  AND  THERAPY END DATE : ASKU, UNIT DOS
  12. SPIRONOLACTONE [Concomitant]
     Active Substance: SPIRONOLACTONE
     Dosage: 1DD1,  BRAND NAME NOT SPECIFIED,THERAPY START DATE  AND  THERAPY END DATE : ASKU, UNIT DOSE AND UNIT
  13. METFORMIN [Concomitant]
     Active Substance: METFORMIN HYDROCHLORIDE
     Dosage: BRAND NAME NOT SPECIFIED, THERAPY START DATE  AND  THERAPY END DATE : ASKU, 2DD1,UNIT DOSE AND UNIT

REACTIONS (4)
  - Hypomagnesaemia [Recovering/Resolving]
  - Anaemia [Recovering/Resolving]
  - Hypocalcaemia [Recovering/Resolving]
  - Malaise [Recovering/Resolving]

NARRATIVE: CASE EVENT DATE: 20220517
